FAERS Safety Report 11131588 (Version 1)
Quarter: 2015Q2

REPORT INFORMATION
  Report Type: Spontaneous
  Country: US (occurrence: US)
  Receive Date: 20150522
  Receipt Date: 20150522
  Transmission Date: 20150821
  Serious: Yes (Hospitalization, Other)
  Sender: FDA-Public Use
  Company Number: US-DRREDDYS-USA/USA/15/0048162

PATIENT
  Age: 39 Year
  Sex: Male
  Weight: 130 kg

DRUGS (5)
  1. QUETIAPINE FUMARATE TABLETS [Interacting]
     Active Substance: QUETIAPINE FUMARATE
     Route: 065
  2. LORAZEPAM. [Concomitant]
     Active Substance: LORAZEPAM
     Indication: BIPOLAR I DISORDER
     Route: 065
  3. QUETIAPINE FUMARATE TABLETS [Suspect]
     Active Substance: QUETIAPINE FUMARATE
     Indication: BIPOLAR I DISORDER
     Route: 065
  4. QUETIAPINE FUMARATE TABLETS [Interacting]
     Active Substance: QUETIAPINE FUMARATE
     Route: 065
  5. VALPROIC ACID. [Interacting]
     Active Substance: VALPROIC ACID
     Indication: BIPOLAR I DISORDER
     Route: 065

REACTIONS (4)
  - Diabetic ketoacidosis [Recovered/Resolved]
  - Hyperosmolar state [Recovered/Resolved]
  - Metabolic syndrome [Recovered/Resolved]
  - Drug interaction [Unknown]
